FAERS Safety Report 19865759 (Version 1)
Quarter: 2021Q3

REPORT INFORMATION
  Report Type: Spontaneous
  Country: CA (occurrence: CA)
  Receive Date: 20210921
  Receipt Date: 20210921
  Transmission Date: 20211014
  Serious: Yes (Hospitalization)
  Sender: FDA-Public Use
  Company Number: CA-TEVA-2021-CA-1956313

PATIENT
  Age: 57 Year
  Sex: Female

DRUGS (11)
  1. PREDNISONE. [Suspect]
     Active Substance: PREDNISONE
     Indication: NEPHROTIC SYNDROME
     Dosage: 60 MILLIGRAM DAILY;
     Route: 048
  2. LASIX [Concomitant]
     Active Substance: FUROSEMIDE
     Route: 065
  3. VITAMIN D [Concomitant]
     Active Substance: VITAMIN D NOS
     Route: 065
  4. CALCIUM [Concomitant]
     Active Substance: CALCIUM
     Route: 065
  5. QUETIAPINE. [Concomitant]
     Active Substance: QUETIAPINE
     Route: 065
  6. LAXATIVES [Concomitant]
     Active Substance: UNSPECIFIED INGREDIENT
     Route: 065
  7. RISEDRONATE (MANUFACTURER UNKNOWN) [Concomitant]
     Active Substance: RISEDRONATE SODIUM
     Route: 065
  8. COVERSYL [Concomitant]
     Active Substance: PERINDOPRIL
     Route: 065
  9. LIPITOR [Concomitant]
     Active Substance: ATORVASTATIN CALCIUM
     Route: 065
  10. PANTOPRAZOLE [Concomitant]
     Active Substance: PANTOPRAZOLE
     Route: 065
  11. VITAMIN B12 [Concomitant]
     Active Substance: CYANOCOBALAMIN
     Route: 065

REACTIONS (6)
  - Acute kidney injury [Unknown]
  - Vision blurred [Unknown]
  - Respiratory alkalosis [Unknown]
  - Thirst [Unknown]
  - Hyperglycaemia [Unknown]
  - Blood glucose abnormal [Unknown]
